FAERS Safety Report 16468796 (Version 1)
Quarter: 2019Q2

REPORT INFORMATION
  Report Type: Spontaneous
  Country: US (occurrence: US)
  Receive Date: 20190624
  Receipt Date: 20190624
  Transmission Date: 20190711
  Serious: Yes (Death)
  Sender: FDA-Public Use
  Company Number: US-PERRIGO-19US007290

PATIENT
  Age: 34 Year
  Sex: Female

DRUGS (1)
  1. ALLERGY [Suspect]
     Active Substance: UNSPECIFIED INGREDIENT
     Indication: INTENTIONAL OVERDOSE
     Dosage: UNKNOWN, UNKNOWN
     Route: 048

REACTIONS (3)
  - Intentional overdose [Fatal]
  - Seizure [Fatal]
  - Cardiac arrest [Fatal]
